FAERS Safety Report 4317406-1 (Version None)
Quarter: 2004Q1

REPORT INFORMATION
  Report Type: 
  Country: None (occurrence: None)
  Receive Date: 20040312
  Receipt Date: 20040301
  Transmission Date: 20041129
  Serious: Yes (Hospitalization)
  Sender: FDA-Public Use
  Company Number: 04-0009PO FOLLOW UP 1

PATIENT
  Age: 59 Year
  Sex: Male

DRUGS (4)
  1. PONTAL (MEFANAMIC ACID) PONSTEL [Suspect]
     Indication: MYALGIA
     Dosage: 1000MG, QID, PO
     Route: 048
     Dates: start: 20040113, end: 20040114
  2. PONTAL (MEFANAMIC ACID) PONSTEL [Suspect]
     Indication: PYREXIA
     Dosage: 1000MG, QID, PO
     Route: 048
     Dates: start: 20040113, end: 20040114
  3. BEZATOL SR (BEZAFIBRATE) [Suspect]
     Indication: HYPERLIPIDAEMIA
     Dosage: 200MG, QD, PO
     Route: 048
     Dates: start: 20030201
  4. NIFEDIPINE [Concomitant]

REACTIONS (9)
  - ALANINE AMINOTRANSFERASE INCREASED [None]
  - ASPARTATE AMINOTRANSFERASE INCREASED [None]
  - BLOOD LACTATE DEHYDROGENASE DECREASED [None]
  - DRUG INEFFECTIVE [None]
  - EOSINOPHIL COUNT INCREASED [None]
  - HEPATIC FUNCTION ABNORMAL [None]
  - LIVER DISORDER [None]
  - REFUSAL OF TREATMENT BY PATIENT [None]
  - RHABDOMYOLYSIS [None]
